FAERS Safety Report 7386538-6 (Version None)
Quarter: 2011Q1

REPORT INFORMATION
  Report Type: 
  Country: None (occurrence: None)
  Receive Date: 20110329
  Receipt Date: 20110329
  Transmission Date: 20110831
  Serious: No
  Sender: FDA-Public Use
  Company Number: None

PATIENT
  Age: 44 Year
  Sex: Male
  Weight: 78.9259 kg

DRUGS (1)
  1. CIPROFLOXACIN [Suspect]
     Indication: PREOPERATIVE CARE
     Dosage: 500MG X1 PO
     Route: 048

REACTIONS (3)
  - FEELING HOT [None]
  - PARAESTHESIA [None]
  - RASH ERYTHEMATOUS [None]
